FAERS Safety Report 20363238 (Version 1)
Quarter: 2022Q1

REPORT INFORMATION
  Report Type: Spontaneous
  Country: US (occurrence: US)
  Receive Date: 20220121
  Receipt Date: 20220121
  Transmission Date: 20220424
  Serious: Yes (Other)
  Sender: FDA-Public Use
  Company Number: US-APOTEX-2022AP002475

PATIENT
  Age: 62 Year
  Sex: Male

DRUGS (1)
  1. ZIPRASIDONE [Suspect]
     Active Substance: ZIPRASIDONE
     Indication: Tourette^s disorder
     Dosage: UNK
     Route: 065

REACTIONS (2)
  - Tardive dyskinesia [Unknown]
  - Stereotypy [Unknown]
